FAERS Safety Report 15989169 (Version 1)
Quarter: 2019Q1

REPORT INFORMATION
  Report Type: Spontaneous
  Country: US (occurrence: US)
  Receive Date: 20190220
  Receipt Date: 20190220
  Transmission Date: 20190418
  Serious: Yes (Other)
  Sender: FDA-Public Use
  Company Number: None

PATIENT
  Age: 93 Year
  Sex: Female
  Weight: 64.35 kg

DRUGS (9)
  1. AMLODIPINE BESYLATE. [Concomitant]
     Active Substance: AMLODIPINE BESYLATE
  2. KISQALI [Suspect]
     Active Substance: RIBOCICLIB
     Indication: CORONARY ARTERY BYPASS
     Route: 048
     Dates: start: 20181107
  3. TORSEMIDE. [Concomitant]
     Active Substance: TORSEMIDE
  4. KLOR-COM M15 [Concomitant]
  5. GABAPENTIN. [Concomitant]
     Active Substance: GABAPENTIN
  6. FEMARA [Suspect]
     Active Substance: LETROZOLE
     Indication: CORONARY ARTERY BYPASS
     Route: 048
     Dates: start: 20181107
  7. METOPROLOL TARTRATE. [Concomitant]
     Active Substance: METOPROLOL TARTRATE
  8. CRESTOR [Concomitant]
     Active Substance: ROSUVASTATIN CALCIUM
  9. HYDROCODONE-APAP [Concomitant]
     Active Substance: ACETAMINOPHEN\HYDROCODONE

REACTIONS (1)
  - Disease progression [None]
